FAERS Safety Report 4991078-5 (Version None)
Quarter: 2006Q2

REPORT INFORMATION
  Report Type: 
  Country: None (occurrence: None)
  Receive Date: 20060428
  Receipt Date: 20060418
  Transmission Date: 20061013
  Serious: Yes (Other)
  Sender: FDA-Public Use
  Company Number: 2006048164

PATIENT
  Age: 36 Year
  Sex: Male
  Weight: 68.0396 kg

DRUGS (6)
  1. BENADRYL [Suspect]
     Indication: RASH
     Dosage: 4 KAPSEALS EVERY 4 TO 6 HOURS ORAL
     Route: 048
     Dates: start: 20060317, end: 20060320
  2. GLIMEPIRIDE [Concomitant]
  3. OLMESARTAN MEDOXOMIL [Concomitant]
  4. METFORMIN [Concomitant]
  5. ZIPRASIDONE HCL [Concomitant]
  6. GLIPIZIDE [Concomitant]

REACTIONS (3)
  - INAPPROPRIATE SCHEDULE OF DRUG ADMINISTRATION [None]
  - INCORRECT DOSE ADMINISTERED [None]
  - PARAESTHESIA [None]
